FAERS Safety Report 8697206 (Version 3)
Quarter: 2012Q4

REPORT INFORMATION
  Report Type: 
  Country: US (occurrence: US)
  Receive Date: 20120801
  Receipt Date: 20121008
  Transmission Date: 20130627
  Serious: No
  Sender: FDA-Public Use
  Company Number: US-PFIZER INC-2012182055

PATIENT
  Age: 53 Year
  Sex: Male
  Weight: 95.24 kg

DRUGS (2)
  1. VIAGRA [Suspect]
     Indication: ERECTILE DYSFUNCTION
     Dosage: 50 mg, as needed
     Route: 048
  2. VIAGRA [Suspect]
     Dosage: 100 mg, UNK

REACTIONS (3)
  - Upper extremity mass [Recovered/Resolved]
  - Drug ineffective [Unknown]
  - Spermatozoa abnormal [Unknown]
